FAERS Safety Report 7883239-2 (Version None)
Quarter: 2011Q4

REPORT INFORMATION
  Report Type: 
  Country: None (occurrence: None)
  Receive Date: 20111101
  Receipt Date: 20111101
  Transmission Date: 20120403
  Serious: Yes (Other)
  Sender: FDA-Public Use
  Company Number: None

PATIENT
  Sex: Female
  Weight: 94.3482 kg

DRUGS (2)
  1. CINRYZE 500 UNITS VIRO PHARMA BIOLOGICAL [Suspect]
     Indication: HEREDITARY ANGIOEDEMA
     Dosage: 1000 UNITS 3-4 DAYS IV
     Route: 042
     Dates: start: 20111007
  2. CINRYZE 500 UNITS VIRO PHARMA BIOLOGICAL [Suspect]
     Indication: HEREDITARY ANGIOEDEMA
     Dosage: 1000 UNITS 3-4 DAYS IV
     Route: 042
     Dates: start: 20110901

REACTIONS (6)
  - DYSPNOEA [None]
  - PHARYNGEAL OEDEMA [None]
  - PALLOR [None]
  - PANIC ATTACK [None]
  - DIZZINESS [None]
  - THROAT TIGHTNESS [None]
